FAERS Safety Report 15428999 (Version 1)
Quarter: 2018Q3

REPORT INFORMATION
  Report Type: Spontaneous
  Country: US (occurrence: US)
  Receive Date: 20180919
  Receipt Date: 20180919
  Transmission Date: 20181010
  Serious: Yes (Hospitalization)
  Sender: FDA-Public Use
  Company Number: None

PATIENT
  Weight: 88.45 kg

DRUGS (2)
  1. LEUPROLIDE [Suspect]
     Active Substance: LEUPROLIDE
     Dates: end: 20120606
  2. CASODEX [Suspect]
     Active Substance: BICALUTAMIDE
     Dates: end: 20120908

REACTIONS (1)
  - Treatment failure [None]
